FAERS Safety Report 5828178-3 (Version None)
Quarter: 2008Q3

REPORT INFORMATION
  Report Type: 
  Country: None (occurrence: None)
  Receive Date: 20080731
  Receipt Date: 20080729
  Transmission Date: 20090109
  Serious: Yes (Other)
  Sender: FDA-Public Use
  Company Number: US-BRISTOL-MYERS SQUIBB COMPANY-13909155

PATIENT
  Age: 63 Year
  Sex: Male

DRUGS (7)
  1. CARBOPLATIN [Suspect]
     Indication: NON-SMALL CELL LUNG CANCER
  2. PACLITAXEL [Suspect]
     Indication: NON-SMALL CELL LUNG CANCER
  3. MEGESTROL ACETATE [Suspect]
     Indication: NON-SMALL CELL LUNG CANCER
  4. DOCETAXEL [Suspect]
     Indication: NON-SMALL CELL LUNG CANCER
  5. PEMETREXED DISODIUM [Suspect]
     Indication: NON-SMALL CELL LUNG CANCER
  6. IMEXON [Suspect]
  7. ENOXAPARIN SODIUM [Suspect]

REACTIONS (7)
  - ADRENAL INSUFFICIENCY [None]
  - ANAEMIA [None]
  - BLOOD TESTOSTERONE DECREASED [None]
  - DECREASED APPETITE [None]
  - DIZZINESS POSTURAL [None]
  - FATIGUE [None]
  - MALIGNANT NEOPLASM PROGRESSION [None]
